FAERS Safety Report 9109547 (Version 2)
Quarter: 2013Q1

REPORT INFORMATION
  Report Type: Spontaneous
  Country: ES (occurrence: ES)
  Receive Date: 20130222
  Receipt Date: 20130304
  Transmission Date: 20140127
  Serious: Yes (Other)
  Sender: FDA-Public Use
  Company Number: ES-PFIZER INC-2013063083

PATIENT
  Age: 65 Year
  Sex: Female

DRUGS (4)
  1. LYRICA [Suspect]
     Indication: SCIATICA
     Dosage: ONCE A DAY IN THE FIRST WEEK AND THEN TWICE PER DAY. IN TOTAL SHE TOOK 26 CAPSULES.
     Dates: start: 201212, end: 20121226
  2. LEVOTHROID [Concomitant]
     Dosage: 75 MG, UNK
  3. LACTOFERRIN [Concomitant]
  4. SIMVASTATIN [Concomitant]

REACTIONS (2)
  - VIIth nerve paralysis [Recovering/Resolving]
  - Ageusia [Recovered/Resolved]
